FAERS Safety Report 8970471 (Version 1)
Quarter: 2012Q4

REPORT INFORMATION
  Report Type: 
  Country: US (occurrence: US)
  Receive Date: 20121218
  Receipt Date: 20121218
  Transmission Date: 20130627
  Serious: No
  Sender: FDA-Public Use
  Company Number: US-GLAXOSMITHKLINE-A0975122A

PATIENT

DRUGS (1)
  1. NICORETTE NICOTINE POLACRILEX LOZENGE, 2MG [Suspect]
     Indication: PRODUCT USED FOR UNKNOWN INDICATION

REACTIONS (6)
  - Tremor [Unknown]
  - Diarrhoea [Unknown]
  - Memory impairment [Unknown]
  - Fatigue [Unknown]
  - Somnolence [Unknown]
  - Abnormal dreams [Unknown]
